FAERS Safety Report 7801001-3 (Version None)
Quarter: 2011Q4

REPORT INFORMATION
  Report Type: 
  Country: None (occurrence: None)
  Receive Date: 20111007
  Receipt Date: 20110930
  Transmission Date: 20120403
  Serious: Yes (Hospitalization, Other)
  Sender: FDA-Public Use
  Company Number: CA-BIOGENIDEC-2011BI018125

PATIENT
  Age: 23 Year
  Sex: Female

DRUGS (13)
  1. GABAPENTIN [Concomitant]
     Indication: BACK PAIN
  2. CYMBALTA [Concomitant]
  3. PRISTIQ [Concomitant]
     Indication: DEPRESSION
  4. AVONEX [Suspect]
     Indication: MULTIPLE SCLEROSIS
     Route: 030
     Dates: start: 20100102, end: 20110301
  5. AVONEX [Suspect]
     Route: 030
     Dates: start: 20110319
  6. CYMBALTA [Concomitant]
     Indication: DEPRESSION
  7. GABAPENTIN [Concomitant]
  8. TYLENOL-500 [Concomitant]
     Indication: BACK DISORDER
  9. TRAZODONE HYDROCHLORIDE [Concomitant]
     Indication: SLEEP DISORDER
  10. GABAPENTIN [Concomitant]
     Indication: NEURALGIA
  11. GABAPENTIN [Concomitant]
  12. VITAMIN D [Concomitant]
  13. IUD [Concomitant]

REACTIONS (6)
  - NEUTROPHIL COUNT DECREASED [None]
  - MULTIPLE SCLEROSIS RELAPSE [None]
  - INFLUENZA LIKE ILLNESS [None]
  - INFLAMMATORY BOWEL DISEASE [None]
  - WHITE BLOOD CELL COUNT DECREASED [None]
  - LIVER FUNCTION TEST ABNORMAL [None]
